FAERS Safety Report 14533518 (Version 1)
Quarter: 2018Q1

REPORT INFORMATION
  Report Type: Spontaneous
  Country: DE (occurrence: DE)
  Receive Date: 20180215
  Receipt Date: 20180215
  Transmission Date: 20180509
  Serious: Yes (Hospitalization)
  Sender: FDA-Public Use
  Company Number: DE-BIOGEN-2018BI00524526

PATIENT
  Sex: Female
  Weight: 58.8 kg

DRUGS (3)
  1. THYROXIN [Concomitant]
     Active Substance: LEVOTHYROXINE
     Indication: THYROID DISORDER
     Route: 065
  2. TECFIDERA [Suspect]
     Active Substance: DIMETHYL FUMARATE
     Indication: MULTIPLE SCLEROSIS
     Route: 048
     Dates: start: 20140528
  3. GESOPROLOL (NOS) [Concomitant]
     Indication: ARRHYTHMIA
     Route: 065

REACTIONS (1)
  - Thyroid disorder [Recovered/Resolved]

NARRATIVE: CASE EVENT DATE: 2016
